FAERS Safety Report 4668144-7 (Version None)
Quarter: 2005Q2

REPORT INFORMATION
  Report Type: 
  Country: None (occurrence: None)
  Receive Date: 20050523
  Receipt Date: 20050224
  Transmission Date: 20051028
  Serious: Yes (Other)
  Sender: FDA-Public Use
  Company Number: PHBS2005US02928

PATIENT
  Age: 70 Year
  Sex: Female

DRUGS (6)
  1. ANASTROZOLE [Concomitant]
     Dosage: 1 MG
     Route: 065
  2. PAMIDRONATE DISODIUM [Suspect]
     Indication: METASTATIC NEOPLASM
     Dosage: 90 MG, TIW
  3. DOCETAXEL [Concomitant]
     Dosage: 120 MG, TIW
     Route: 065
  4. DOLASETRON [Concomitant]
     Dosage: 100 MG, TIW
     Route: 065
  5. CIMETIDINE [Concomitant]
     Dosage: 300 MG, TIW
     Route: 065
  6. DIPHENHYDRAMINE HCL [Concomitant]
     Dosage: 50 MG, TIW
     Route: 065

REACTIONS (6)
  - BONE DEBRIDEMENT [None]
  - BONE DISORDER [None]
  - FISTULA [None]
  - JAW DISORDER [None]
  - OSTEONECROSIS [None]
  - TOOTH EXTRACTION [None]
